FAERS Safety Report 5015538-6 (Version None)
Quarter: 2006Q2

REPORT INFORMATION
  Report Type: 
  Country: None (occurrence: None)
  Receive Date: 20060601
  Receipt Date: 20060321
  Transmission Date: 20061013
  Serious: Yes (Hospitalization)
  Sender: FDA-Public Use
  Company Number: IE-AVENTIS-200612763GDDC

PATIENT
  Age: 79 Year
  Sex: Male

DRUGS (11)
  1. ARAVA [Suspect]
     Route: 048
  2. PREDNISOLONE [Suspect]
     Route: 048
  3. ENBREL [Suspect]
     Route: 058
     Dates: start: 20051206, end: 20060128
  4. WARFARIN [Suspect]
     Dosage: DOSE: UNK
  5. ACETYLSALICYLIC ACID SRT [Suspect]
     Dosage: DOSE: UNK
     Dates: start: 20060204, end: 20060207
  6. DILTIAZEM HCL [Concomitant]
     Dosage: DOSE: UNK
  7. FOSAMAX [Concomitant]
     Dosage: DOSE: UNK
  8. CALCICHEW [Concomitant]
     Dosage: DOSE: UNK
  9. NEXIUM [Concomitant]
     Dosage: DOSE: UNK
  10. DIFENE [Concomitant]
     Dosage: DOSE: UNK
  11. FUROSEMIDE [Concomitant]
     Dosage: DOSE: UNK

REACTIONS (3)
  - CARDIAC FAILURE [None]
  - CEREBROVASCULAR DISORDER [None]
  - PNEUMONIA [None]
